FAERS Safety Report 5390574-9 (Version None)
Quarter: 2007Q3

REPORT INFORMATION
  Report Type: 
  Country: None (occurrence: None)
  Receive Date: 20070718
  Receipt Date: 20070131
  Transmission Date: 20080115
  Serious: No
  Sender: FDA-Public Use
  Company Number: US-KINGPHARMUSA00001-K200700117

PATIENT

DRUGS (2)
  1. LEVOXYL [Suspect]
     Indication: HYPOTHYROIDISM
     Dosage: 200 MCG UNK
     Route: 048
     Dates: start: 19960101, end: 20070110
  2. LEVOXYL [Suspect]
     Dosage: 175 MCG, QD
     Route: 048
     Dates: start: 20070111

REACTIONS (5)
  - BLOOD THYROID STIMULATING HORMONE DECREASED [None]
  - HYPERTHYROIDISM [None]
  - MALAISE [None]
  - PALPITATIONS [None]
  - THYROID FUNCTION TEST ABNORMAL [None]
